FAERS Safety Report 5403099-9 (Version None)
Quarter: 2007Q3

REPORT INFORMATION
  Report Type: 
  Country: None (occurrence: None)
  Receive Date: 20070801
  Receipt Date: 20070801
  Transmission Date: 20080115
  Serious: Yes (Other)
  Sender: FDA-Public Use
  Company Number: US-ROXANE LABORATORIES, INC-2007-DE-04535GD

PATIENT
  Sex: Female

DRUGS (6)
  1. PREDNISONE [Suspect]
     Indication: ASTHMA
  2. METHYLPREDNISOLONE 16MG TAB [Suspect]
     Indication: ASTHMA
  3. FLUTICASONE/SALMETEROL [Suspect]
     Indication: ASTHMA
     Route: 055
  4. ALBUTEROL [Concomitant]
     Route: 055
  5. OMEPRAZOLE [Concomitant]
  6. CALCIUM CHLORIDE [Concomitant]

REACTIONS (5)
  - CATARACT [None]
  - CUSHINGOID [None]
  - DRUG RESISTANCE [None]
  - SLEEP APNOEA SYNDROME [None]
  - WEIGHT INCREASED [None]
